FAERS Safety Report 8265532 (Version 2)
Quarter: 2014Q2

REPORT INFORMATION
  Report Type: Report from Study
  Country: AR (occurrence: AR)
  Receive Date: 20111128
  Receipt Date: 20140523
  Transmission Date: 20141212
  Serious: Yes (Other)
  Sender: FDA-Public Use
  Company Number: AR-ROCHE-1016595

PATIENT
  Sex: Female

DRUGS (1)
  1. RANIBIZUMAB [Suspect]
     Indication: MACULOPATHY
     Dosage: START DATE:JUN OR JUL/2011
     Route: 050

REACTIONS (3)
  - Ankle fracture [Recovered/Resolved]
  - Eye irritation [Unknown]
  - Eye pain [Unknown]
